FAERS Safety Report 17324209 (Version 2)
Quarter: 2020Q2

REPORT INFORMATION
  Report Type: Spontaneous
  Country: US (occurrence: US)
  Receive Date: 20200127
  Receipt Date: 20200409
  Transmission Date: 20200713
  Serious: No
  Sender: FDA-Public Use
  Company Number: US-DRREDDYS-USA/USA/20/0119012

PATIENT
  Age: 27 Year
  Sex: Female

DRUGS (5)
  1. DULAGLUTIDE. [Concomitant]
     Active Substance: DULAGLUTIDE
     Indication: TYPE 2 DIABETES MELLITUS
     Route: 065
     Dates: start: 2017, end: 2018
  2. GLIMEPIRIDE. [Suspect]
     Active Substance: GLIMEPIRIDE
     Indication: TYPE 2 DIABETES MELLITUS
     Route: 065
  3. GLIMEPIRIDE. [Suspect]
     Active Substance: GLIMEPIRIDE
     Route: 065
     Dates: end: 2018
  4. GLIMEPIRIDE. [Suspect]
     Active Substance: GLIMEPIRIDE
     Route: 065
  5. GLIMEPIRIDE. [Suspect]
     Active Substance: GLIMEPIRIDE
     Route: 065
     Dates: start: 2014

REACTIONS (1)
  - Hypoglycaemia [Recovered/Resolved]

NARRATIVE: CASE EVENT DATE: 2017
